FAERS Safety Report 21048823 (Version 1)
Quarter: 2022Q3

REPORT INFORMATION
  Report Type: Spontaneous
  Country: DE (occurrence: None)
  Receive Date: 20220706
  Receipt Date: 20220706
  Transmission Date: 20221026
  Serious: Yes (Life-Threatening, Other)
  Sender: FDA-Public Use
  Company Number: 2022A237666

PATIENT
  Age: 89 Year
  Sex: Male

DRUGS (3)
  1. ACALABRUTINIB [Suspect]
     Active Substance: ACALABRUTINIB
     Indication: Chronic lymphocytic leukaemia
     Route: 048
     Dates: start: 202006, end: 202104
  2. VENETOCLAX [Concomitant]
     Active Substance: VENETOCLAX
     Dates: start: 202104
  3. BENDAMUSTINE [Concomitant]
     Active Substance: BENDAMUSTINE
     Dosage: 2 DOSES OF BENDAMUSTINE 50 MG / M? Q 7D
     Dates: start: 202105

REACTIONS (3)
  - Malignant neoplasm progression [Unknown]
  - Tumour lysis syndrome [Unknown]
  - Cardiac failure [Unknown]

NARRATIVE: CASE EVENT DATE: 20210401
